FAERS Safety Report 18995591 (Version 1)
Quarter: 2021Q1

REPORT INFORMATION
  Report Type: Spontaneous
  Country: US (occurrence: US)
  Receive Date: 20210311
  Receipt Date: 20210311
  Transmission Date: 20210420
  Serious: No
  Sender: FDA-Public Use
  Company Number: US-ALLERGAN-2034169US

PATIENT
  Age: 14 Year
  Sex: Female

DRUGS (7)
  1. SEROQUEL [Concomitant]
     Active Substance: QUETIAPINE FUMARATE
     Indication: DEPRESSIVE SYMPTOM
  2. VIIBRYD [Suspect]
     Active Substance: VILAZODONE HYDROCHLORIDE
     Dosage: 20 MG, QD
     Route: 065
     Dates: start: 202006
  3. MELATONIN [Concomitant]
     Active Substance: MELATONIN
     Indication: INSOMNIA
     Dosage: 5 MG, PRN
  4. VIIBRYD [Suspect]
     Active Substance: VILAZODONE HYDROCHLORIDE
     Indication: MAJOR DEPRESSION
     Dosage: 40 MG, QD
     Route: 065
     Dates: start: 202007, end: 20200824
  5. SEROQUEL [Concomitant]
     Active Substance: QUETIAPINE FUMARATE
     Indication: INSOMNIA
     Dosage: 1 TO 2 TABLETS NIGHTLY
  6. VIIBRYD [Suspect]
     Active Substance: VILAZODONE HYDROCHLORIDE
     Dosage: 30 MG, QD
     Route: 065
     Dates: start: 202007
  7. VIIBRYD [Suspect]
     Active Substance: VILAZODONE HYDROCHLORIDE
     Dosage: 10 MG, QD
     Route: 065
     Dates: start: 20200620

REACTIONS (3)
  - Off label use [Unknown]
  - Nightmare [Recovered/Resolved]
  - Abnormal dreams [Recovered/Resolved]

NARRATIVE: CASE EVENT DATE: 20200620
